FAERS Safety Report 19241585 (Version 1)
Quarter: 2021Q2

REPORT INFORMATION
  Report Type: Other
  Country: NL (occurrence: FI)
  Receive Date: 20210511
  Receipt Date: 20210511
  Transmission Date: 20210717
  Serious: Yes (Other)
  Sender: FDA-Public Use
  Company Number: FI-ASTELLAS-2021US016629

PATIENT
  Age: 73 Year
  Sex: Female

DRUGS (10)
  1. REGADENOSON [Suspect]
     Active Substance: REGADENOSON
     Indication: EXERCISE TEST
     Dosage: 400 ?G, SINGLE (ONCE)
     Route: 042
     Dates: start: 20210322, end: 20210322
  2. BISOPROLOL [Concomitant]
     Active Substance: BISOPROLOL
     Indication: PRODUCT USED FOR UNKNOWN INDICATION
     Dosage: UNK UNK, UNKNOWN FREQ.
     Route: 065
  3. REGADENOSON [Suspect]
     Active Substance: REGADENOSON
     Indication: EXERCISE TEST
     Dosage: 400 ?G, SINGLE (ONCE)
     Route: 042
     Dates: start: 20210322, end: 20210322
  4. CARDACE [RAMIPRIL] [Concomitant]
     Indication: PRODUCT USED FOR UNKNOWN INDICATION
     Dosage: UNK UNK, UNKNOWN FREQ.
     Route: 065
     Dates: start: 20201125
  5. ATORVASTATIN [Concomitant]
     Active Substance: ATORVASTATIN
     Indication: PRODUCT USED FOR UNKNOWN INDICATION
     Dosage: UNK UNK, UNKNOWN FREQ.
     Route: 065
     Dates: start: 20201125
  6. REGADENOSON [Suspect]
     Active Substance: REGADENOSON
     Indication: EXERCISE TEST
     Dosage: 400 ?G, SINGLE (ONCE)
     Route: 042
     Dates: start: 20210322, end: 20210322
  7. REGADENOSON [Suspect]
     Active Substance: REGADENOSON
     Indication: EXERCISE TEST
     Dosage: 400 ?G, SINGLE (ONCE)
     Route: 042
     Dates: start: 20210322, end: 20210322
  8. SPASMO?LYT PLUS [Concomitant]
     Indication: PRODUCT USED FOR UNKNOWN INDICATION
     Dosage: UNK UNK, UNKNOWN FREQ.
     Route: 065
  9. TECHNESCAN SESTAMIBI [Concomitant]
     Active Substance: TETRAKIS(2-METHOXYISOBUTYLISOCYANIDE)COPPER(I) TETRAFLUOROBORATE
     Indication: SCAN MYOCARDIAL PERFUSION
     Dosage: UNK UNK, UNKNOWN FREQ.
     Route: 065
     Dates: start: 20210322, end: 20210322
  10. AMLODIPIN KRKA [Concomitant]
     Active Substance: AMLODIPINE BESYLATE
     Indication: PRODUCT USED FOR UNKNOWN INDICATION
     Dosage: UNK UNK, UNKNOWN FREQ.
     Route: 065
     Dates: start: 20201125

REACTIONS (6)
  - Paraesthesia [Unknown]
  - Hypersensitivity [Unknown]
  - Facial paralysis [Unknown]
  - Lip oedema [Unknown]
  - Sensorimotor disorder [Unknown]
  - Eyelid oedema [Unknown]

NARRATIVE: CASE EVENT DATE: 20210322
